FAERS Safety Report 9751897 (Version 1)
Quarter: 2013Q4

REPORT INFORMATION
  Report Type: Spontaneous
  Country: FR (occurrence: FR)
  Receive Date: 20131213
  Receipt Date: 20131213
  Transmission Date: 20140711
  Serious: Yes (Death, Hospitalization)
  Sender: FDA-Public Use
  Company Number: FR-BRISTOL-MYERS SQUIBB COMPANY-19889237

PATIENT
  Age: 78 Year
  Sex: Male

DRUGS (6)
  1. COUMADINE [Suspect]
     Indication: ATRIAL FIBRILLATION
     Dates: end: 20131111
  2. BISOPROLOL [Concomitant]
  3. LASILIX [Concomitant]
  4. DIFFU-K [Concomitant]
  5. NORSET [Concomitant]
  6. PARIET [Concomitant]

REACTIONS (8)
  - Death [Fatal]
  - Coma [Unknown]
  - Respiratory distress [Unknown]
  - Renal failure [Unknown]
  - Epistaxis [Recovered/Resolved]
  - Normochromic normocytic anaemia [Not Recovered/Not Resolved]
  - International normalised ratio increased [Recovered/Resolved]
  - Overdose [Unknown]
